FAERS Safety Report 4571910-X (Version None)
Quarter: 2005Q1

REPORT INFORMATION
  Report Type: 
  Country: None (occurrence: None)
  Receive Date: 20050203
  Receipt Date: 20050203
  Transmission Date: 20050727
  Serious: Yes (Other)
  Sender: FDA-Public Use
  Company Number: None

PATIENT
  Age: 46 Year
  Sex: Female

DRUGS (2)
  1. PROZAC [Suspect]
     Dosage: 80 MG PO 1/D
     Route: 048
  2. WELLBUTRIN SR [Concomitant]

REACTIONS (3)
  - ANXIETY [None]
  - IRRITABILITY [None]
  - MOOD ALTERED [None]
